FAERS Safety Report 25790721 (Version 1)
Quarter: 2025Q3

REPORT INFORMATION
  Report Type: Spontaneous
  Country: US (occurrence: None)
  Receive Date: 20250910
  Receipt Date: 20250910
  Transmission Date: 20251020
  Serious: Yes (Other)
  Sender: FDA-CTU
  Company Number: None

PATIENT
  Age: 51 Year
  Sex: Female

DRUGS (2)
  1. ITOVEBI [Suspect]
     Active Substance: INAVOLISIB
     Indication: Breast cancer female
     Dosage: 9MG ONCE DAILY ?
  2. IBRANCE [Suspect]
     Active Substance: PALBOCICLIB

REACTIONS (5)
  - White blood cell count decreased [None]
  - Therapy interrupted [None]
  - Oral pain [None]
  - Blood glucose increased [None]
  - Insomnia [None]
